FAERS Safety Report 5261825-6 (Version None)
Quarter: 2007Q1

REPORT INFORMATION
  Report Type: 
  Country: None (occurrence: None)
  Receive Date: 20070310
  Receipt Date: 20070228
  Transmission Date: 20070707
  Serious: Yes (Disabling)
  Sender: FDA-Public Use
  Company Number: 2006UW07047

PATIENT
  Age: 684 Month
  Sex: Female
  Weight: 88.6 kg

DRUGS (27)
  1. SEROQUEL [Suspect]
     Indication: ANXIETY
     Route: 048
     Dates: start: 20010202, end: 20050108
  2. SEROQUEL [Suspect]
     Indication: DEPRESSION
     Route: 048
     Dates: start: 20010202, end: 20050108
  3. SEROQUEL [Suspect]
     Dosage: 100-200 MG
     Route: 048
     Dates: start: 20010702, end: 20050716
  4. SEROQUEL [Suspect]
     Dosage: 100-200 MG
     Route: 048
     Dates: start: 20010702, end: 20050716
  5. SEROQUEL [Suspect]
     Dosage: 100-300 MG
     Route: 048
     Dates: start: 20050330, end: 20051020
  6. SEROQUEL [Suspect]
     Dosage: 100-300 MG
     Route: 048
     Dates: start: 20050330, end: 20051020
  7. RISPERDAL [Concomitant]
  8. ZYPREXA [Concomitant]
     Dates: start: 19990701, end: 20010201
  9. ZOLOFT [Concomitant]
     Dates: start: 19990801, end: 20000501
  10. EFFEXOR [Concomitant]
     Dates: start: 20000601, end: 20051001
  11. DEPAKOTE [Concomitant]
     Dates: start: 20020301, end: 20051001
  12. ESTRADIOL [Concomitant]
     Dates: start: 19990320
  13. MEDROXYPR [Concomitant]
     Dates: start: 19990320
  14. ETODOLAC [Concomitant]
     Dates: start: 19990415
  15. ALPRAZOLAM [Concomitant]
     Route: 048
     Dates: start: 19990701
  16. RHINOCORT [Concomitant]
     Dates: start: 19990901
  17. POT CHLORIDE [Concomitant]
     Dates: start: 19990901
  18. FUROSEMIDE [Concomitant]
     Route: 048
     Dates: start: 19990901
  19. CLARITIN [Concomitant]
     Route: 048
     Dates: start: 19990901
  20. DICYCLOMINE [Concomitant]
     Route: 048
     Dates: start: 19991117
  21. NORTRIPTYLINE HYDROCHLORIDE [Concomitant]
     Route: 048
     Dates: start: 20000428
  22. CIPRO [Concomitant]
     Dates: start: 20020418
  23. CLARINEX [Concomitant]
     Dates: start: 20030401
  24. TRICOR [Concomitant]
     Route: 048
     Dates: start: 20040115
  25. ALBUTEROL [Concomitant]
     Dates: start: 20050211
  26. ZITHROMAX [Concomitant]
     Route: 048
     Dates: start: 20050211
  27. VYTORIN [Concomitant]
     Dosage: 10-20 MG
     Route: 048
     Dates: start: 20050215

REACTIONS (6)
  - BLOOD CHOLESTEROL INCREASED [None]
  - DIABETES MELLITUS INSULIN-DEPENDENT [None]
  - HYPERTENSION [None]
  - KNEE ARTHROPLASTY [None]
  - SCHIZOPHRENIA [None]
  - WEIGHT INCREASED [None]
